FAERS Safety Report 4570145-4 (Version None)
Quarter: 2005Q1

REPORT INFORMATION
  Report Type: 
  Country: None (occurrence: None)
  Receive Date: 20050131
  Receipt Date: 20050111
  Transmission Date: 20050727
  Serious: Yes (Other)
  Sender: FDA-Public Use
  Company Number: TRP_0052_2005

PATIENT
  Age: 51 Year
  Sex: Female

DRUGS (2)
  1. RIBASPHERE [Suspect]
  2. PEGINTERFERON ALFA-2B/ROCHE PHARMACEUTICALS [Suspect]

REACTIONS (3)
  - ANAEMIA [None]
  - CHILLS [None]
  - HEADACHE [None]
